FAERS Safety Report 24468120 (Version 1)
Quarter: 2024Q4

REPORT INFORMATION
  Report Type: Spontaneous
  Country: US (occurrence: US)
  Receive Date: 20241018
  Receipt Date: 20241018
  Transmission Date: 20250115
  Serious: No
  Sender: Phathom Pharmaceuticals
  Company Number: US-PHATHOM PHARMACEUTICALS INC.-2024PHT00832

PATIENT
  Age: 50 Year
  Sex: Female

DRUGS (14)
  1. VOQUEZNA [Suspect]
     Active Substance: VONOPRAZAN FUMARATE
     Indication: Gastrooesophageal reflux disease
     Dosage: 20 MG, 1X/DAY
     Route: 048
     Dates: start: 20240806, end: 20240830
  2. LORATADINE [Concomitant]
     Active Substance: LORATADINE
  3. DULOXETINE [Concomitant]
     Active Substance: DULOXETINE
  4. LYRICA [Concomitant]
     Active Substance: PREGABALIN
  5. ONDANSETRON [Concomitant]
     Active Substance: ONDANSETRON
  6. TRAMADOL [Concomitant]
     Active Substance: TRAMADOL
  7. RIZATRIPTAN [Concomitant]
     Active Substance: RIZATRIPTAN
  8. VITAMIN B12 [Concomitant]
     Active Substance: CYANOCOBALAMIN
  9. TIZANIDINE [Concomitant]
     Active Substance: TIZANIDINE
  10. ADDERALL [Concomitant]
     Active Substance: AMPHETAMINE ASPARTATE\AMPHETAMINE SULFATE\DEXTROAMPHETAMINE SACCHARATE\DEXTROAMPHETAMINE SULFATE
  11. NORCO [Concomitant]
     Active Substance: ACETAMINOPHEN\HYDROCODONE BITARTRATE
  12. ESTRADIOL TRANSDERMAL SYSTEM [Concomitant]
     Active Substance: ESTRADIOL
  13. BOTOX [Concomitant]
     Active Substance: ONABOTULINUMTOXINA
  14. DICLOFENAC SODIUM;LIDOCAINE HYDROCHLORIDE [Concomitant]

REACTIONS (1)
  - Drug ineffective [Recovered/Resolved]

NARRATIVE: CASE EVENT DATE: 20240806
